FAERS Safety Report 6424718-4 (Version None)
Quarter: 2009Q4

REPORT INFORMATION
  Report Type: 
  Country: None (occurrence: None)
  Receive Date: 20091030
  Receipt Date: 20091030
  Transmission Date: 20100525
  Serious: No
  Sender: FDA-Public Use
  Company Number: None

PATIENT
  Age: 63 Year

DRUGS (1)
  1. VENLAFAXINE [Suspect]
     Indication: POST-TRAUMATIC STRESS DISORDER
     Dosage: 150 MG EVERY DAY PO
     Route: 048
     Dates: start: 20090320, end: 20090515

REACTIONS (5)
  - ALCOHOL USE [None]
  - ANXIETY [None]
  - IRRITABILITY [None]
  - NIGHTMARE [None]
  - PRODUCT SUBSTITUTION ISSUE [None]
